FAERS Safety Report 18898614 (Version 1)
Quarter: 2021Q1

REPORT INFORMATION
  Report Type: Spontaneous
  Country: DE (occurrence: DE)
  Receive Date: 20210216
  Receipt Date: 20210216
  Transmission Date: 20210420
  Serious: Yes (Other)
  Sender: FDA-Public Use
  Company Number: DE-TOLMAR, INC.-21DE025451

PATIENT
  Weight: 1.11 kg

DRUGS (4)
  1. ACYCLOVIR. [Suspect]
     Active Substance: ACYCLOVIR
     Indication: MATERNAL EXPOSURE TIMING UNSPECIFIED
     Dosage: 500 MG, TID
     Route: 064
  2. ACYCLOVIR. [Suspect]
     Active Substance: ACYCLOVIR
     Indication: CONGENITAL HERPES SIMPLEX INFECTION
     Dosage: 3 X 20 MG/KG
     Route: 042
  3. GANCICLOVIR. [Suspect]
     Active Substance: GANCICLOVIR
     Indication: CONGENITAL HERPES SIMPLEX INFECTION
     Dosage: UNK
     Route: 047
  4. ACYCLOVIR. [Suspect]
     Active Substance: ACYCLOVIR
     Dosage: 4 X 25 MG/KG
     Route: 048

REACTIONS (5)
  - Neonatal respiratory distress syndrome [Unknown]
  - Rash [Unknown]
  - Premature baby [Unknown]
  - Maternal exposure timing unspecified [Unknown]
  - Viral rash [Unknown]
